FAERS Safety Report 9569022 (Version 1)
Quarter: 2013Q3

REPORT INFORMATION
  Report Type: Spontaneous
  Country: US (occurrence: US)
  Receive Date: 20130930
  Receipt Date: 20130930
  Transmission Date: 20140515
  Serious: No
  Sender: FDA-Public Use
  Company Number: US-AMGEN-USASP2013059079

PATIENT
  Age: 27 Year
  Sex: Female
  Weight: 88 kg

DRUGS (5)
  1. ENBREL [Suspect]
     Indication: PRODUCT USED FOR UNKNOWN INDICATION
     Dosage: 50 MG, QWK
     Route: 058
     Dates: start: 2008, end: 200812
  2. BUPROPION [Concomitant]
     Dosage: 75 MG, UNK
  3. PRILOSEC                           /00661201/ [Concomitant]
     Dosage: 10 MG, UNK
  4. ALPRAZOLAM [Concomitant]
     Dosage: 1 MG, UNK
  5. ESCITALOPRAM [Concomitant]
     Dosage: 10 MG, UNK

REACTIONS (1)
  - Bronchitis [Unknown]
